FAERS Safety Report 9301582 (Version 1)
Quarter: 2012Q4

REPORT INFORMATION
  Report Type: Spontaneous
  Country: FR (occurrence: None)
  Receive Date: 20121109
  Receipt Date: 20121109
  Transmission Date: 20130627
  Serious: Yes (Other)
  Sender: FDA-Public Use
  Company Number: 2012S1000402

PATIENT
  Age: 52 Year
  Sex: Male

DRUGS (6)
  1. CUBICIN (DAPTOMYCIN) [Suspect]
     Route: 042
     Dates: start: 20120419, end: 20120423
  2. AZANTAC [Suspect]
     Dates: start: 20120414
  3. AMIODARONE HYDROCHLORIDE [Suspect]
  4. SPIRONOLACTONE [Concomitant]
  5. FUROSEMIDE [Concomitant]
  6. ALLOPURINOL [Concomitant]

REACTIONS (19)
  - Septic shock [None]
  - Renal failure [None]
  - Endocarditis [None]
  - Peritonitis [None]
  - Hyperammonaemia [None]
  - Tremor [None]
  - Drug eruption [None]
  - Respiratory distress [None]
  - Nervous system disorder [None]
  - Haemodynamic instability [None]
  - Staphylococcus test positive [None]
  - Candida test positive [None]
  - Disorientation [None]
  - Speech disorder [None]
  - Hepatic encephalopathy [None]
  - Septic embolus [None]
  - Toxic skin eruption [None]
  - Rash [None]
  - Pulmonary sepsis [None]
